FAERS Safety Report 7880366-0 (Version None)
Quarter: 2011Q4

REPORT INFORMATION
  Report Type: 
  Country: None (occurrence: None)
  Receive Date: 20111101
  Receipt Date: 20111025
  Transmission Date: 20120403
  Serious: Yes (Disabling)
  Sender: FDA-Public Use
  Company Number: PHHY2011GB94325

PATIENT
  Age: 43 Year
  Sex: Female

DRUGS (2)
  1. TRANEXAMIC ACID [Concomitant]
     Dosage: 1 DF, BID
     Route: 048
  2. METFORMIN HCL [Suspect]
     Dosage: 1 DF, BID
     Route: 048
     Dates: start: 20111001

REACTIONS (1)
  - DIZZINESS [None]
